FAERS Safety Report 20203567 (Version 1)
Quarter: 2021Q4

REPORT INFORMATION
  Report Type: Spontaneous
  Country: US (occurrence: US)
  Receive Date: 20211219
  Receipt Date: 20211219
  Transmission Date: 20220303
  Serious: Yes (Life-Threatening, Hospitalization)
  Sender: FDA-Public Use
  Company Number: US-JNJFOC-20211214138

PATIENT
  Age: 28 Year
  Sex: Female
  Weight: 81 kg

DRUGS (5)
  1. TYLENOL [Suspect]
     Active Substance: ACETAMINOPHEN
     Indication: Toothache
     Dosage: ACETAMINOPHEN AT A DOSE OF 5100 MG ONCE OVER 4 HOURS
     Route: 048
     Dates: start: 20020119, end: 20020119
  2. TYLENOL [Suspect]
     Active Substance: ACETAMINOPHEN
     Dosage: ACETAMINOPHEN AT A DOSE OF 6000 MG ONCE
     Route: 048
     Dates: start: 20020121, end: 20020121
  3. ACETAMINOPHEN\ASPIRIN\CAFFEINE [Suspect]
     Active Substance: ACETAMINOPHEN\ASPIRIN\CAFFEINE
     Indication: Toothache
     Dosage: UNKNOWN DOSE, TAKEN 6 TIMES
     Route: 048
     Dates: end: 20020119
  4. MOTRIN [Concomitant]
     Active Substance: IBUPROFEN
     Indication: Product used for unknown indication
     Route: 065
     Dates: end: 20020119
  5. ASPIRIN [Concomitant]
     Active Substance: ASPIRIN
     Indication: Product used for unknown indication
     Dosage: DOSE OF 1625 MG OVER 4 HOURS
     Route: 065
     Dates: end: 20020119

REACTIONS (6)
  - Trichomoniasis [Recovered/Resolved]
  - Accidental overdose [Recovered/Resolved]
  - Acute hepatic failure [Recovered/Resolved]
  - Arrhythmia [Recovered/Resolved]
  - Chest X-ray abnormal [Recovered/Resolved]
  - Product administration error [Recovered/Resolved]
